FAERS Safety Report 7633309-9 (Version None)
Quarter: 2011Q3

REPORT INFORMATION
  Report Type: 
  Country: None (occurrence: None)
  Receive Date: 20110725
  Receipt Date: 20100716
  Transmission Date: 20111222
  Serious: Yes (Other)
  Sender: FDA-Public Use
  Company Number: US-BRISTOL-MYERS SQUIBB COMPANY-15109689

PATIENT
  Age: 39 Year
  Sex: Male
  Weight: 82 kg

DRUGS (2)
  1. PRILOSEC [Concomitant]
     Dosage: DRUG STOPPED
  2. SPRYCEL [Suspect]
     Indication: CHRONIC MYELOID LEUKAEMIA
     Dosage: 1ST DOSE: 12MAY2010(EVENING);2ND DOSE: 13MAY2010.
     Dates: start: 20100512, end: 20100501

REACTIONS (5)
  - MYALGIA [None]
  - VOMITING [None]
  - DIARRHOEA [None]
  - PALPITATIONS [None]
  - HEADACHE [None]
